FAERS Safety Report 6479994-9 (Version None)
Quarter: 2009Q4

REPORT INFORMATION
  Report Type: 
  Country: None (occurrence: None)
  Receive Date: 20091208
  Receipt Date: 20091123
  Transmission Date: 20100525
  Serious: Yes (Hospitalization)
  Sender: FDA-Public Use
  Company Number: ES-SANOFI-AVENTIS-2009SA005654

PATIENT
  Age: 76 Year
  Sex: Male

DRUGS (5)
  1. BLINDED THERAPY [Suspect]
     Indication: NON-SMALL CELL LUNG CANCER
     Route: 042
     Dates: start: 20090921, end: 20090921
  2. BLINDED THERAPY [Suspect]
     Route: 042
     Dates: start: 20091103, end: 20091103
  3. DOCETAXEL [Suspect]
     Indication: NON-SMALL CELL LUNG CANCER
     Route: 042
     Dates: start: 20090921, end: 20090921
  4. DOCETAXEL [Suspect]
     Route: 042
     Dates: start: 20091103, end: 20091103
  5. CORTICOSTEROID NOS [Concomitant]

REACTIONS (3)
  - HEADACHE [None]
  - NEUTROPENIA [None]
  - RESPIRATORY TRACT INFECTION [None]
